FAERS Safety Report 6914415-0 (Version None)
Quarter: 2010Q3

REPORT INFORMATION
  Report Type: 
  Country: None (occurrence: None)
  Receive Date: 20100803
  Receipt Date: 20100722
  Transmission Date: 20110219
  Serious: Yes (Death)
  Sender: FDA-Public Use
  Company Number: JHP201000187

PATIENT
  Age: 3 Year
  Sex: Female

DRUGS (3)
  1. DANTRIUM [Suspect]
     Indication: CEREBRAL PALSY
     Dosage: 25 MG, DAILY, VIA GASTROSTOMY TUBE, OTHER
     Dates: start: 20080111, end: 20080705
  2. DEPAKENE [Suspect]
     Indication: INFANTILE SPASMS
     Dosage: 140 MG, BID, VIA GASTROSTOMY TUBE, OTHER
     Dates: start: 20060301, end: 20080705
  3. WINTERMIN (CHLORPROMAZINE HYDROCHLORIDE) [Suspect]
     Indication: CEREBRAL PALSY
     Dosage: 5 MG, TID, VIA GASTROSTOMY TUBE, OTHER
     Dates: start: 20080122, end: 20080705

REACTIONS (11)
  - BLOOD CREATINE PHOSPHOKINASE MB INCREASED [None]
  - BLOOD PRESSURE IMMEASURABLE [None]
  - DEHYDRATION [None]
  - DRY MOUTH [None]
  - INFUSION RELATED REACTION [None]
  - NEUROLEPTIC MALIGNANT SYNDROME [None]
  - PERIPHERAL COLDNESS [None]
  - PO2 DECREASED [None]
  - RHABDOMYOLYSIS [None]
  - TACHYPNOEA [None]
  - VOMITING [None]
